FAERS Safety Report 7658295 (Version 2)
Quarter: 2012Q4

REPORT INFORMATION
  Report Type: Report from Study
  Country: JP (occurrence: JP)
  Receive Date: 20101105
  Receipt Date: 20121101
  Transmission Date: 20130627
  Serious: Yes (Hospitalization, Other)
  Sender: FDA-Public Use
  Company Number: JP-JNJFOC-20101100163

PATIENT
  Age: 72 Year
  Sex: Female
  Weight: 64.1 kg

DRUGS (26)
  1. TAPENTADOL HYDROCHLORIDE [Suspect]
     Indication: CANCER PAIN
     Route: 048
     Dates: start: 20100924
  2. TAPENTADOL HYDROCHLORIDE [Suspect]
     Indication: CANCER PAIN
     Route: 048
     Dates: start: 20100928
  3. TAPENTADOL HYDROCHLORIDE [Suspect]
     Indication: CANCER PAIN
     Route: 048
     Dates: start: 20101007, end: 20101019
  4. TAPENTADOL HYDROCHLORIDE [Suspect]
     Indication: CANCER PAIN
     Route: 048
     Dates: start: 20100922
  5. LEVOFOLINATE CALCIUM [Suspect]
     Indication: CANCER PAIN
     Dates: start: 20101005
  6. LEVOFOLINATE CALCIUM [Suspect]
     Indication: CANCER PAIN
     Dates: start: 20101007
  7. LEVOFOLINATE CALCIUM [Suspect]
     Indication: CANCER PAIN
     Dates: start: 20100921
  8. LEVOFOLINATE CALCIUM [Suspect]
     Indication: CANCER PAIN
     Dates: start: 20101019
  9. 5 FU [Suspect]
     Indication: CANCER PAIN
     Dates: start: 20101019
  10. 5 FU [Suspect]
     Indication: CANCER PAIN
     Dates: start: 20101005
  11. 5 FU [Suspect]
     Indication: CANCER PAIN
     Dates: start: 20100921
  12. CAMPTOSAR [Suspect]
     Indication: CANCER PAIN
     Route: 065
     Dates: start: 20100921
  13. CAMPTOSAR [Suspect]
     Indication: CANCER PAIN
     Route: 065
     Dates: start: 20101019
  14. CAMPTOSAR [Suspect]
     Indication: CANCER PAIN
     Route: 065
     Dates: start: 20101005
  15. ANTIEMETIC [Concomitant]
     Indication: NAUSEA
     Dates: start: 20101010
  16. BLOPRESS [Concomitant]
     Route: 048
  17. FLUITRAN [Concomitant]
     Route: 048
  18. URINORM [Concomitant]
     Route: 048
  19. GASTER [Concomitant]
     Route: 048
  20. EXCELASE [Concomitant]
     Route: 048
  21. BIO-THREE [Concomitant]
     Route: 048
  22. LOXONIN [Concomitant]
     Indication: CANCER PAIN
     Route: 048
  23. MUCOSTA [Concomitant]
     Route: 048
  24. MAGNESIUM [Concomitant]
     Route: 048
  25. GRANISETRON [Concomitant]
     Route: 041
     Dates: start: 20101019
  26. DECADRON [Concomitant]
     Route: 042
     Dates: start: 20101019

REACTIONS (1)
  - Diarrhoea [Recovered/Resolved]
